FAERS Safety Report 20306917 (Version 2)
Quarter: 2022Q1

REPORT INFORMATION
  Report Type: Spontaneous
  Country: US (occurrence: US)
  Receive Date: 20220106
  Receipt Date: 20220114
  Transmission Date: 20220423
  Serious: No
  Sender: FDA-Public Use
  Company Number: US-AMGEN-USASP2022000922

PATIENT
  Age: 71 Year
  Sex: Male
  Weight: 119.27 kg

DRUGS (2)
  1. KYPROLIS [Suspect]
     Active Substance: CARFILZOMIB
     Indication: Plasma cell myeloma
     Dosage: 124 MILLIGRAM
     Route: 042
  2. KYPROLIS [Suspect]
     Active Substance: CARFILZOMIB
     Dosage: 124 MILLIGRAM
     Route: 042

REACTIONS (1)
  - Product leakage [Unknown]

NARRATIVE: CASE EVENT DATE: 20220104
